FAERS Safety Report 23553841 (Version 10)
Quarter: 2025Q1

REPORT INFORMATION
  Report Type: Spontaneous
  Country: US (occurrence: US)
  Receive Date: 20240222
  Receipt Date: 20250217
  Transmission Date: 20250409
  Serious: Yes (Death, Other)
  Sender: PFIZER
  Company Number: US-PFIZER INC-PV202400024282

PATIENT
  Age: 73 Year
  Sex: Male
  Weight: 101.13 kg

DRUGS (32)
  1. BRAFTOVI [Suspect]
     Active Substance: ENCORAFENIB
     Indication: Metastatic malignant melanoma
     Dosage: 450 MG, 1X/DAY
     Route: 048
     Dates: start: 202008
  2. BRAFTOVI [Suspect]
     Active Substance: ENCORAFENIB
     Indication: Iron deficiency anaemia
     Dosage: 450 MG, DAILY
     Dates: start: 202011, end: 202012
  3. BRAFTOVI [Suspect]
     Active Substance: ENCORAFENIB
     Indication: Restless legs syndrome
     Dates: start: 202101
  4. BRAFTOVI [Suspect]
     Active Substance: ENCORAFENIB
     Indication: Metastases to central nervous system
     Dosage: TAKE 450 MG BY MOUTH 1 X PER DAY
     Route: 048
     Dates: start: 202102
  5. BRAFTOVI [Suspect]
     Active Substance: ENCORAFENIB
     Dosage: 450 MG, DAILY
  6. BRAFTOVI [Suspect]
     Active Substance: ENCORAFENIB
     Dosage: 450 MG, DAILY
     Route: 048
  7. BINIMETINIB [Concomitant]
     Active Substance: BINIMETINIB
     Dates: start: 202008
  8. CELEBREX [Concomitant]
     Active Substance: CELECOXIB
     Indication: Back pain
     Route: 048
  9. CELEBREX [Concomitant]
     Active Substance: CELECOXIB
     Indication: Pain in extremity
  10. COZAAR [Concomitant]
     Active Substance: LOSARTAN POTASSIUM
     Dosage: TAKE 1 CAP BY MOUTH ONCE PER DAY
     Route: 048
  11. D3 5000 [Concomitant]
     Dosage: TAKE 1 CAP BY MOUTH ONCE PER DAY
     Route: 048
  12. DILAUDID [Concomitant]
     Active Substance: HYDROMORPHONE HYDROCHLORIDE
     Route: 048
  13. FERROUS SULFATE [Concomitant]
     Active Substance: FERROUS SULFATE
     Dosage: TAKE 1 TAB BY MOUTH ONCE PER DAY
     Route: 048
  14. GLUCOTROL [Concomitant]
     Active Substance: GLIPIZIDE
     Dosage: TAKE 1 TAB BY MOUTH ONCE PER DAY
     Route: 048
  15. HUMALOG [Concomitant]
     Active Substance: INSULIN LISPRO
     Route: 058
  16. INSULIN LISPRO [Concomitant]
     Active Substance: INSULIN LISPRO
  17. JANUMET [Concomitant]
     Active Substance: METFORMIN HYDROCHLORIDE\SITAGLIPTIN PHOSPHATE
     Dosage: TAKE 1 TAB BY MOUTH TWO TIMES PER DAY WITH MEALS
     Route: 048
  18. LANTUS [Concomitant]
     Active Substance: INSULIN GLARGINE
     Dosage: INJECT 45 UNITS SUBCUTANEOUS EVERY NIGHT AT BEDTIME
     Route: 058
  19. LEVETIRACETAM [Concomitant]
     Active Substance: LEVETIRACETAM
     Dosage: 1000 MG, 2X/DAY
     Route: 048
  20. LIDOCAINE [Concomitant]
     Active Substance: LIDOCAINE
     Route: 061
  21. LOPID [Concomitant]
     Active Substance: GEMFIBROZIL
     Dosage: TAB 1 TABLET BY MOUTH TWO TIMES PER DAY BEFORE MEALS
     Route: 048
  22. LORAZEPAM [Concomitant]
     Active Substance: LORAZEPAM
     Route: 048
  23. NALOXONE HCL [Concomitant]
     Active Substance: NALOXONE HYDROCHLORIDE
     Indication: Drug use disorder
     Route: 045
  24. NEURONTIN [Concomitant]
     Active Substance: GABAPENTIN
     Dosage: TAKE 4 CAPS (CAPSULES) BY MOUTH EVERY NIGHT AT BEDTIME
     Route: 048
  25. NORCO [Concomitant]
     Active Substance: ACETAMINOPHEN\HYDROCODONE BITARTRATE
     Indication: Pain
     Route: 048
  26. NOVOLOG [Concomitant]
     Active Substance: INSULIN ASPART
     Route: 058
  27. NOVOLOG [Concomitant]
     Active Substance: INSULIN ASPART
     Route: 058
  28. NOVOLOG [Concomitant]
     Active Substance: INSULIN ASPART
     Route: 058
  29. NOVOLOG [Concomitant]
     Active Substance: INSULIN ASPART
     Route: 058
  30. OMEPRAZOLE [Concomitant]
     Active Substance: OMEPRAZOLE
     Dosage: TAKE 1 CAP BY MOUTH ONCE PER DAY
     Route: 048
  31. PRAMIPEXOLE [Concomitant]
     Active Substance: PRAMIPEXOLE
     Dosage: TAKE 5 TABS BY MOUTH EVERY NIGHT AT BEDTIME
     Route: 048
  32. SENOKOT-S [Concomitant]
     Active Substance: DOCUSATE SODIUM\SENNOSIDES
     Indication: Constipation
     Route: 048

REACTIONS (19)
  - Death [Fatal]
  - Brain operation [Unknown]
  - Tumour pseudoprogression [Unknown]
  - Diarrhoea [Recovered/Resolved]
  - Vasogenic cerebral oedema [Unknown]
  - Cerebral thrombosis [Unknown]
  - Cerebral haemorrhage [Unknown]
  - Hypoacusis [Unknown]
  - Headache [Unknown]
  - Aphasia [Unknown]
  - Gliosis [Unknown]
  - Condition aggravated [Unknown]
  - Red blood cell count decreased [Unknown]
  - Haemoglobin decreased [Unknown]
  - Haematocrit decreased [Unknown]
  - Monocyte count increased [Unknown]
  - Blood glucose increased [Unknown]
  - Blood urea increased [Unknown]
  - Rash [Unknown]

NARRATIVE: CASE EVENT DATE: 20210801
